FAERS Safety Report 24388617 (Version 1)
Quarter: 2024Q4

REPORT INFORMATION
  Report Type: Spontaneous
  Country: FR (occurrence: FR)
  Receive Date: 20241002
  Receipt Date: 20241002
  Transmission Date: 20250115
  Serious: Yes (Life-Threatening)
  Sender: TEVA
  Company Number: None

PATIENT
  Age: 35 Year
  Sex: Male
  Weight: 72 kg

DRUGS (3)
  1. BROMAZEPAM [Suspect]
     Active Substance: BROMAZEPAM
     Indication: Intentional overdose
     Dosage: TIME INTERVAL: TOTAL: 90 TABLETS OF 6 MG
     Route: 048
     Dates: start: 20240820, end: 20240820
  2. PAROXETINE [Suspect]
     Active Substance: PAROXETINE
     Indication: Intentional overdose
     Dosage: TIME INTERVAL: TOTAL: 28 TABLETS OF 20 MG, PAROXETINE BASE
     Route: 048
     Dates: start: 20240820, end: 20240820
  3. ACETAMINOPHEN [Suspect]
     Active Substance: ACETAMINOPHEN
     Indication: Intentional overdose
     Dosage: TIME INTERVAL: TOTAL: 16 G
     Route: 048
     Dates: start: 20240820, end: 20240820

REACTIONS (6)
  - Haemodynamic instability [Not Recovered/Not Resolved]
  - Poisoning deliberate [Recovered/Resolved]
  - Pneumonia aspiration [Not Recovered/Not Resolved]
  - Nervous system disorder [Not Recovered/Not Resolved]
  - Respiratory failure [Not Recovered/Not Resolved]
  - Acute kidney injury [Recovered/Resolved]

NARRATIVE: CASE EVENT DATE: 20240820
